FAERS Safety Report 10190385 (Version 1)
Quarter: 2014Q2

REPORT INFORMATION
  Report Type: Spontaneous
  Country: IT (occurrence: IT)
  Receive Date: 20140522
  Receipt Date: 20140522
  Transmission Date: 20141212
  Serious: Yes (Hospitalization)
  Sender: FDA-Public Use
  Company Number: IT-ASTRAZENECA-2014SE33388

PATIENT
  Age: 15196 Day
  Sex: Female

DRUGS (4)
  1. SEROQUEL XR [Suspect]
     Indication: DEPRESSION
     Dosage: 15 OF 400 MILLIGRAMS IN THE AFTERNOON
     Route: 048
     Dates: start: 20140428, end: 20140428
  2. GABAPENTIN [Concomitant]
     Route: 048
  3. STILNOX [Concomitant]
     Route: 048
  4. EFEXOR [Concomitant]
     Route: 048

REACTIONS (2)
  - Intentional self-injury [Unknown]
  - Drug abuse [Unknown]
